FAERS Safety Report 8785170 (Version 3)
Quarter: 2012Q4

REPORT INFORMATION
  Report Type: 
  Country: CZ (occurrence: CZ)
  Receive Date: 20120914
  Receipt Date: 20121101
  Transmission Date: 20130627
  Serious: Yes (Hospitalization, Other)
  Sender: FDA-Public Use
  Company Number: CZ-ELI_LILLY_AND_COMPANY-CZ201209003811

PATIENT
  Age: 41 Year
  Sex: Female
  Weight: 72 kg

DRUGS (7)
  1. ZYPREXA [Suspect]
     Dosage: 10 mg, qd
  2. ZYPREXA [Suspect]
     Dosage: 10 mg, bid
  3. ZYPREXA [Suspect]
     Dosage: 10 mg, qd
  4. VENLAFAXINE [Concomitant]
     Dosage: 150 mg, qd
  5. VENLAFAXINE [Concomitant]
     Dosage: 75 mg, qd
  6. MIANSERINE [Concomitant]
     Dosage: 30 mg, bid
  7. CLONAZEPAM [Concomitant]
     Dosage: 0.5 mg, bid

REACTIONS (7)
  - Poisoning [Unknown]
  - Drug effect incomplete [Unknown]
  - Heart rate increased [Unknown]
  - Mood altered [Unknown]
  - Alanine aminotransferase increased [Unknown]
  - Aspartate aminotransferase increased [Unknown]
  - Gamma-glutamyltransferase [Unknown]
